FAERS Safety Report 4935180-2 (Version None)
Quarter: 2006Q1

REPORT INFORMATION
  Report Type: 
  Country: None (occurrence: None)
  Receive Date: 20060301
  Receipt Date: 20060218
  Transmission Date: 20060701
  Serious: Yes (Hospitalization)
  Sender: FDA-Public Use
  Company Number: 2006BI002928

PATIENT
  Age: 39 Year
  Sex: Female

DRUGS (1)
  1. AVONEX [Suspect]
     Indication: MULTIPLE SCLEROSIS
     Dosage: 30 UG;QW;IM
     Route: 030
     Dates: start: 19980401, end: 20050101

REACTIONS (5)
  - CLOSTRIDIAL INFECTION [None]
  - CLOSTRIDIUM COLITIS [None]
  - CYSTITIS [None]
  - GASTRIC INFECTION [None]
  - MULTIPLE SCLEROSIS RELAPSE [None]
